FAERS Safety Report 5289602-0 (Version None)
Quarter: 2007Q2

REPORT INFORMATION
  Report Type: 
  Country: None (occurrence: None)
  Receive Date: 20070406
  Receipt Date: 20070403
  Transmission Date: 20071010
  Serious: Yes (Hospitalization)
  Sender: FDA-Public Use
  Company Number: 2007CG00276

PATIENT
  Age: 64 Year
  Sex: Female

DRUGS (10)
  1. ATACAND [Suspect]
     Route: 048
  2. OMEPRAZOLE [Suspect]
     Route: 048
  3. MIMPARA [Suspect]
     Route: 048
  4. KAYEXALATE [Suspect]
     Route: 048
  5. ZOLPIDEM [Suspect]
     Route: 048
  6. COUMADIN [Suspect]
     Route: 048
  7. OROCAL [Suspect]
     Route: 048
  8. LEXOMIL [Suspect]
  9. ORACILLINE [Suspect]
  10. VENOFER [Suspect]

REACTIONS (1)
  - INTRAVASCULAR HAEMOLYSIS [None]
